FAERS Safety Report 7051260-2 (Version None)
Quarter: 2010Q4

REPORT INFORMATION
  Report Type: 
  Country: None (occurrence: None)
  Receive Date: 20101019
  Receipt Date: 20101012
  Transmission Date: 20110411
  Serious: Yes (Hospitalization)
  Sender: FDA-Public Use
  Company Number: FR-MPIJNJ-2010-05251

PATIENT

DRUGS (4)
  1. VELCADE [Suspect]
     Indication: MULTIPLE MYELOMA
     Dosage: UNK
     Dates: start: 20080311, end: 20080617
  2. TERALITHE [Suspect]
     Indication: BIPOLAR I DISORDER
     Dosage: 250 MG, UNK
     Route: 048
     Dates: start: 20060101
  3. DEXAMETHASONE [Suspect]
     Indication: MULTIPLE MYELOMA
     Dosage: UNK
     Dates: start: 20080311, end: 20080617
  4. AMITRIPTYLINE HYDROCHLORIDE [Concomitant]
     Dosage: 25 MG, UNK
     Dates: start: 20060101

REACTIONS (1)
  - CONGESTIVE CARDIOMYOPATHY [None]
